FAERS Safety Report 14297731 (Version 1)
Quarter: 2020Q3

REPORT INFORMATION
  Report Type: Report from Study
  Country: PL (occurrence: PL)
  Receive Date: 20171218
  Receipt Date: 20171218
  Transmission Date: 20201104
  Serious: Yes (Death, Life-Threatening, Hospitalization, Other)
  Sender: FDA-Public Use
  Company Number: PL-ASTRAZENECA-2017SF00101

PATIENT
  Age: 22208 Day
  Sex: Male

DRUGS (35)
  1. ETOPOSIDE. [Suspect]
     Active Substance: ETOPOSIDE
     Indication: SMALL CELL LUNG CANCER
     Dosage: 100 MG/M2  EVERY THREE WEEKS
     Route: 065
     Dates: start: 20170719, end: 20170719
  2. ETOPOSIDE. [Suspect]
     Active Substance: ETOPOSIDE
     Indication: SMALL CELL LUNG CANCER
     Dosage: 100 MG/M2, EVERY THREE WEEKS
     Route: 065
     Dates: start: 20170831, end: 20170831
  3. ETOPOSIDE. [Suspect]
     Active Substance: ETOPOSIDE
     Indication: SMALL CELL LUNG CANCER
     Dosage: 100 MG/M2, EVERY THREE WEEKS
     Route: 065
     Dates: start: 20170901, end: 20170901
  4. ENARENAL [Concomitant]
     Active Substance: ENALAPRIL
     Indication: HYPERTENSION
     Dosage: 10 MG BID
     Route: 048
     Dates: start: 201707
  5. IPOREL [Concomitant]
     Active Substance: CLONIDINE
     Indication: HYPERTENSION
     Route: 048
     Dates: start: 20170802
  6. KALIPOZ PROLONGATUM [Concomitant]
     Indication: PROPHYLAXIS
     Route: 048
     Dates: start: 20170914, end: 20170924
  7. MEDI4736 [Suspect]
     Active Substance: DURVALUMAB
     Indication: SMALL CELL LUNG CANCER
     Route: 042
     Dates: start: 20170718, end: 20170718
  8. TREMELIMUMAB. [Suspect]
     Active Substance: TREMELIMUMAB
     Indication: SMALL CELL LUNG CANCER
     Route: 042
     Dates: start: 20170809, end: 20170809
  9. ETOPOSIDE. [Suspect]
     Active Substance: ETOPOSIDE
     Indication: SMALL CELL LUNG CANCER
     Dosage: 100 MG/M2, EVERY THREE WEEKS
     Route: 065
     Dates: start: 20170830, end: 20170830
  10. GLUCOPHAGE [Concomitant]
     Active Substance: METFORMIN HYDROCHLORIDE
     Indication: DIABETES MELLITUS
     Route: 048
     Dates: start: 2007, end: 20170920
  11. OXODIL [Concomitant]
     Active Substance: FORMOTEROL FUMARATE
     Indication: BRONCHIAL DISORDER
     Route: 055
     Dates: start: 201707
  12. ETOPOSIDE. [Suspect]
     Active Substance: ETOPOSIDE
     Indication: SMALL CELL LUNG CANCER
     Dosage: 100 MG/M2  EVERY THREE WEEKS
     Route: 065
     Dates: start: 20170718, end: 20170718
  13. ETOPOSIDE. [Suspect]
     Active Substance: ETOPOSIDE
     Indication: SMALL CELL LUNG CANCER
     Dosage: 100 MG/M2, EVERY THREE WEEKS
     Route: 065
     Dates: start: 20170809, end: 20170809
  14. CISPLATIN. [Suspect]
     Active Substance: CISPLATIN
     Indication: SMALL CELL LUNG CANCER
     Dosage: 75 MG/M2, EVERY THREE WEEKS
     Route: 065
     Dates: start: 20170809, end: 20170809
  15. AMARYL [Concomitant]
     Active Substance: GLIMEPIRIDE
     Indication: DIABETES MELLITUS
     Route: 048
     Dates: start: 201705
  16. VALTAP [Concomitant]
     Indication: HYPERTENSION
     Route: 048
     Dates: start: 20170802
  17. DEXAVEN [Concomitant]
     Active Substance: DEXAMETHASONE
     Indication: THROMBOCYTOPENIA
     Route: 042
     Dates: start: 20170915, end: 20170917
  18. TREMELIMUMAB. [Suspect]
     Active Substance: TREMELIMUMAB
     Indication: SMALL CELL LUNG CANCER
     Route: 042
     Dates: start: 20170830, end: 20170830
  19. ETOPOSIDE. [Suspect]
     Active Substance: ETOPOSIDE
     Indication: SMALL CELL LUNG CANCER
     Dosage: 100 MG/M2  EVERY THREE WEEKS
     Route: 065
     Dates: start: 20170810, end: 20170810
  20. CIPRONEX [Concomitant]
     Active Substance: CIPROFLOXACIN
     Indication: URINARY TRACT INFECTION
     Dosage: 500 MG BID
     Route: 048
     Dates: start: 20170906
  21. FURAGINUM [Concomitant]
     Active Substance: FURAZIDINE
     Indication: URINARY TRACT INFECTION
     Dosage: 50 MG BID
     Route: 048
     Dates: start: 20170906
  22. BETALOC ZOK [Concomitant]
     Active Substance: METOPROLOL SUCCINATE
     Indication: ARRHYTHMIA
     Route: 048
     Dates: start: 20170915
  23. FUROSEMIDE. [Concomitant]
     Active Substance: FUROSEMIDE
     Indication: POLYURIA
     Route: 042
     Dates: start: 20170917, end: 20170917
  24. MEDI4736 [Suspect]
     Active Substance: DURVALUMAB
     Indication: SMALL CELL LUNG CANCER
     Route: 042
     Dates: start: 20170809, end: 20170809
  25. TREMELIMUMAB. [Suspect]
     Active Substance: TREMELIMUMAB
     Indication: SMALL CELL LUNG CANCER
     Route: 042
     Dates: start: 20170718, end: 20170718
  26. CISPLATIN. [Suspect]
     Active Substance: CISPLATIN
     Indication: SMALL CELL LUNG CANCER
     Dosage: 75 MG/M2, EVERY THREE WEEKS
     Route: 065
     Dates: start: 20170718, end: 20170718
  27. AGAPURIN [Concomitant]
     Indication: POOR PERIPHERAL CIRCULATION
     Route: 048
     Dates: start: 201610
  28. AVEDOL [Concomitant]
     Active Substance: CARVEDILOL
     Indication: CARDIAC FAILURE
     Route: 048
     Dates: start: 20170706, end: 20170915
  29. MIFLONIDE [Concomitant]
     Active Substance: BUDESONIDE
     Indication: BRONCHIAL DISORDER
     Route: 055
     Dates: start: 201707
  30. ETOPOSIDE. [Suspect]
     Active Substance: ETOPOSIDE
     Indication: SMALL CELL LUNG CANCER
     Dosage: 100 MG/M2  EVERY THREE WEEKS
     Route: 065
     Dates: start: 20170811, end: 20170811
  31. CISPLATIN. [Suspect]
     Active Substance: CISPLATIN
     Indication: SMALL CELL LUNG CANCER
     Dosage: 75 MG/M2, EVERY THREE WEEKS
     Route: 065
     Dates: start: 20170830, end: 20170830
  32. CAPTOPRIL. [Concomitant]
     Active Substance: CAPTOPRIL
     Indication: HYPERTENSION
     Dosage: 12.5 MG OTHER, WHEN PR IS ABOVE 160/90MMHG
     Route: 060
     Dates: start: 201705
  33. MEDI4736 [Suspect]
     Active Substance: DURVALUMAB
     Indication: SMALL CELL LUNG CANCER
     Route: 042
     Dates: start: 20170830, end: 20170830
  34. ETOPOSIDE. [Suspect]
     Active Substance: ETOPOSIDE
     Indication: SMALL CELL LUNG CANCER
     Dosage: 100 MG/M2  EVERY THREE WEEKS
     Route: 065
     Dates: start: 20170720, end: 20170720
  35. METOCLOPRAMID [Concomitant]
     Active Substance: METOCLOPRAMIDE
     Indication: NAUSEA
     Route: 048
     Dates: start: 20170625

REACTIONS (1)
  - Anaemia [Not Recovered/Not Resolved]

NARRATIVE: CASE EVENT DATE: 20170829
